FAERS Safety Report 7330082-9 (Version None)
Quarter: 2011Q1

REPORT INFORMATION
  Report Type: 
  Country: None (occurrence: None)
  Receive Date: 20110303
  Receipt Date: 20110217
  Transmission Date: 20110831
  Serious: Yes (Hospitalization)
  Sender: FDA-Public Use
  Company Number: NL-GENENTECH-312680

PATIENT
  Sex: Female
  Weight: 86 kg

DRUGS (33)
  1. RITUXIMAB [Suspect]
     Indication: DIFFUSE LARGE B-CELL LYMPHOMA
     Dosage: 750 MG, Q2W
     Route: 042
     Dates: start: 20100329
  2. RITUXIMAB [Suspect]
     Dosage: 750 MG, Q2W
     Route: 042
     Dates: start: 20100510
  3. CYCLOPHOSPHAMIDE [Suspect]
     Indication: DIFFUSE LARGE B-CELL LYMPHOMA
     Dosage: 1500 MG, Q2W
     Route: 042
     Dates: start: 20100329
  4. CYCLOPHOSPHAMIDE [Suspect]
     Dosage: 1500 MG, Q2W
     Route: 042
     Dates: start: 20100531
  5. CYCLOPHOSPHAMIDE [Suspect]
     Dosage: 1400 MG, Q2W
     Route: 042
     Dates: start: 20100628
  6. DOXORUBICIN [Suspect]
     Dosage: 100 MG, Q2W
     Route: 042
     Dates: start: 20100531
  7. VINCRISTINE [Suspect]
     Dosage: 2 MG, Q2W
     Route: 042
     Dates: start: 20100510
  8. VALACICLOVIR [Concomitant]
     Indication: PRODUCT USED FOR UNKNOWN INDICATION
     Dosage: UNK
     Route: 048
     Dates: start: 20100315
  9. COTRIM [Concomitant]
     Indication: PROPHYLAXIS
     Dosage: 960 MG, UNK
     Route: 048
     Dates: start: 20100315
  10. PANTOZOL [Concomitant]
     Indication: NAUSEA
     Dosage: 1000 MG, UNK
     Route: 048
     Dates: start: 20100315, end: 20100607
  11. PRIMPERAN TAB [Concomitant]
     Indication: NAUSEA
     Dosage: UNK
     Route: 048
     Dates: start: 20100315, end: 20100704
  12. RITUXIMAB [Suspect]
     Dosage: 700 MG, Q2W
     Route: 042
     Dates: start: 20100628
  13. DOXORUBICIN [Suspect]
     Dosage: 94 MG, Q2W
     Route: 042
     Dates: start: 20100628
  14. PREDNISONE [Suspect]
     Dosage: 100 MG, UNK
     Route: 042
     Dates: start: 20100531
  15. NEUPOGEN [Suspect]
     Dosage: 300 MG, UNK
     Route: 058
     Dates: start: 20100511
  16. NEUPOGEN [Suspect]
     Dosage: 300 MG, UNK
     Route: 058
     Dates: start: 20100531
  17. KYTRIL [Concomitant]
     Indication: PRODUCT USED FOR UNKNOWN INDICATION
     Dosage: UNK
     Route: 048
     Dates: start: 20100315
  18. MOVICOLON [Concomitant]
     Indication: PROPHYLAXIS
     Dosage: UNK
     Route: 048
     Dates: start: 20100319
  19. VINCRISTINE [Suspect]
     Indication: DIFFUSE LARGE B-CELL LYMPHOMA
     Dosage: 2 MG, Q2W
     Route: 042
     Dates: start: 20100329
  20. VINCRISTINE [Suspect]
     Dosage: 2 MG, Q2W
     Route: 042
     Dates: start: 20100531
  21. METOPROLOL [Concomitant]
     Indication: HYPERTENSION
     Dosage: UNK
     Route: 048
     Dates: start: 20080101, end: 20100704
  22. RITUXIMAB [Suspect]
     Dosage: 750 MG, Q2W
     Route: 042
     Dates: start: 20100531
  23. DOXORUBICIN [Suspect]
     Indication: DIFFUSE LARGE B-CELL LYMPHOMA
     Dosage: 100 MG, Q2W
     Route: 042
     Dates: start: 20100329
  24. NEUPOGEN [Suspect]
     Indication: DIFFUSE LARGE B-CELL LYMPHOMA
     Dosage: 300 MG, UNK
     Route: 058
     Dates: start: 20100330
  25. FRAXODI [Concomitant]
     Indication: EMBOLISM ARTERIAL
     Dosage: .8 ML, UNK
     Route: 058
     Dates: start: 20100517, end: 20100704
  26. CYCLOPHOSPHAMIDE [Suspect]
     Dosage: 1500 MG, Q2W
     Route: 042
     Dates: start: 20100510
  27. PREDNISONE [Suspect]
     Indication: DIFFUSE LARGE B-CELL LYMPHOMA
     Dosage: 100 MG, UNK
     Route: 042
     Dates: start: 20100329
  28. FLUCONAZOLE [Concomitant]
     Indication: CANDIDIASIS
     Dosage: UNK
     Route: 048
     Dates: start: 20100422, end: 20100704
  29. DOXORUBICIN [Suspect]
     Dosage: 100 MG, Q2W
     Route: 042
     Dates: start: 20100510
  30. PREDNISONE [Suspect]
     Dosage: 100 MG, UNK
     Route: 042
     Dates: start: 20100628
  31. PREDNISONE [Suspect]
     Dosage: 100 MG, UNK
     Route: 042
     Dates: start: 20100510
  32. NEUPOGEN [Suspect]
     Dosage: 300 MG, UNK
     Route: 058
     Dates: start: 20100628
  33. ACETYLSALICYLIC ACID [Concomitant]
     Indication: TRANSIENT ISCHAEMIC ATTACK
     Dosage: UNK
     Route: 048
     Dates: start: 20080101, end: 20100607

REACTIONS (3)
  - PNEUMONIA [None]
  - PULMONARY EMBOLISM [None]
  - GASTROENTERITIS [None]
